FAERS Safety Report 10723802 (Version 1)
Quarter: 2015Q1

REPORT INFORMATION
  Report Type: Report from Study
  Country: US (occurrence: US)
  Receive Date: 20150120
  Receipt Date: 20150120
  Transmission Date: 20150721
  Serious: Yes (Other)
  Sender: FDA-Public Use
  Company Number: US-ACTAVIS-2015-00160

PATIENT
  Age: 27 Year

DRUGS (2)
  1. HUMIRA [Suspect]
     Active Substance: ADALIMUMAB
     Indication: PSORIASIS
     Dosage: 40 MG, 1/TWO WEEKS
     Route: 058
     Dates: start: 20131023
  2. NORCO [Suspect]
     Active Substance: ACETAMINOPHEN\HYDROCODONE BITARTRATE
     Indication: PAIN MANAGEMENT
     Dosage: UNK UNK, PRN
     Route: 065
     Dates: start: 2014

REACTIONS (3)
  - Uterine disorder [Recovered/Resolved]
  - Rash erythematous [Unknown]
  - Uterine pain [Unknown]

NARRATIVE: CASE EVENT DATE: 2014
